FAERS Safety Report 9142880 (Version 1)
Quarter: 2013Q1

REPORT INFORMATION
  Report Type: Report from Study
  Country: US (occurrence: US)
  Receive Date: 20130306
  Receipt Date: 20130306
  Transmission Date: 20140127
  Serious: No
  Sender: FDA-Public Use
  Company Number: US-VERTEX PHARMACEUTICALS INC.-2013-003056

PATIENT
  Age: 50 Year
  Sex: Male
  Weight: 100 kg

DRUGS (4)
  1. VX-950 (TELAPREVIR) [Suspect]
     Indication: HEPATITIS C
     Dosage: 750 MG, TID
     Route: 048
  2. PEGASYS [Suspect]
     Indication: HEPATITIS C
     Dosage: 180 ?G, UNK
     Dates: start: 20130215
  3. RIBAPAK [Suspect]
     Dosage: 100/DAY
  4. TYLENOL [Concomitant]
     Dosage: 500 MG, UNK

REACTIONS (2)
  - Influenza like illness [Recovered/Resolved]
  - Diarrhoea [Recovered/Resolved]
